FAERS Safety Report 5522888-3 (Version None)
Quarter: 2007Q4

REPORT INFORMATION
  Report Type: 
  Country: None (occurrence: None)
  Receive Date: 20071115
  Receipt Date: 20071108
  Transmission Date: 20080405
  Serious: No
  Sender: FDA-Public Use
  Company Number: TPG2007A00689

PATIENT
  Age: 50 Year
  Sex: Female

DRUGS (5)
  1. ACTOS [Suspect]
     Indication: TYPE 2 DIABETES MELLITUS
     Dosage: 15 M G (15 MG, 1 IN 1 D),  PER ORAL
     Route: 048
     Dates: start: 20051101
  2. ALLOPURINOL [Concomitant]
  3. METFORMIN HCL [Concomitant]
  4. ENALAPRIL MALEATE [Concomitant]
  5. ACETYLSALICYLIC ACID SRT [Concomitant]

REACTIONS (2)
  - FOOT FRACTURE [None]
  - PATHOLOGICAL FRACTURE [None]
